FAERS Safety Report 8097821-3 (Version None)
Quarter: 2012Q1

REPORT INFORMATION
  Report Type: 
  Country: None (occurrence: None)
  Receive Date: 20120128
  Receipt Date: 20110805
  Transmission Date: 20120608
  Serious: Yes (Hospitalization, Other)
  Sender: FDA-Public Use
  Company Number: US-ABBOTT-11P-163-0844273-00

PATIENT
  Sex: Male
  Weight: 79.45 kg

DRUGS (1)
  1. HUMIRA [Suspect]
     Indication: CROHN'S DISEASE
     Dates: end: 20100101

REACTIONS (5)
  - ABDOMINAL PAIN [None]
  - CHRONIC MYELOID LEUKAEMIA [None]
  - NAUSEA [None]
  - VOMITING [None]
  - CROHN'S DISEASE [None]
